FAERS Safety Report 6141563-8 (Version None)
Quarter: 2009Q2

REPORT INFORMATION
  Report Type: 
  Country: None (occurrence: None)
  Receive Date: 20090402
  Receipt Date: 20090327
  Transmission Date: 20091009
  Serious: Yes (Hospitalization)
  Sender: FDA-Public Use
  Company Number: A0756278A

PATIENT
  Age: 66 Year
  Sex: Male
  Weight: 106.8 kg

DRUGS (6)
  1. AVANDIA [Suspect]
     Dosage: 4MG PER DAY
     Route: 048
     Dates: start: 20050514, end: 20070504
  2. TARKA [Concomitant]
  3. DIOVAN [Concomitant]
  4. ENALAPRIL [Concomitant]
  5. PLAVIX [Concomitant]
  6. CLARITIN [Concomitant]

REACTIONS (2)
  - CARDIAC DISORDER [None]
  - CARDIAC FAILURE CONGESTIVE [None]
